FAERS Safety Report 21547331 (Version 1)
Quarter: 2022Q4

REPORT INFORMATION
  Report Type: Report from Study
  Country: CA (occurrence: US)
  Receive Date: 20221103
  Receipt Date: 20221103
  Transmission Date: 20230112
  Serious: Yes (Other)
  Sender: FDA-Public Use
  Company Number: CA-MYLANLABS-202200550991

PATIENT
  Sex: Male

DRUGS (4)
  1. VIAGRA [Suspect]
     Active Substance: SILDENAFIL CITRATE
     Indication: Erectile dysfunction
     Dosage: UNK
     Route: 065
  2. LEVITRA [Suspect]
     Active Substance: VARDENAFIL HYDROCHLORIDE
     Indication: Erectile dysfunction
     Dosage: UNK
     Route: 065
  3. CIALIS [Suspect]
     Active Substance: TADALAFIL
     Indication: Erectile dysfunction
     Dosage: UNK
     Route: 065
  4. STENDRA [Suspect]
     Active Substance: AVANAFIL
     Indication: Erectile dysfunction
     Dosage: UNK
     Route: 065

REACTIONS (3)
  - Serous retinal detachment [Unknown]
  - Retinal vascular occlusion [Unknown]
  - Optic ischaemic neuropathy [Unknown]
